FAERS Safety Report 7655790-1 (Version None)
Quarter: 2011Q3

REPORT INFORMATION
  Report Type: 
  Country: None (occurrence: None)
  Receive Date: 20110801
  Receipt Date: 20110718
  Transmission Date: 20111222
  Serious: Yes (Hospitalization, Other)
  Sender: FDA-Public Use
  Company Number: 2011MA009116

PATIENT
  Age: 59 Year
  Sex: Male
  Weight: 120.2032 kg

DRUGS (17)
  1. AMITRIPTYLINE HCL [Concomitant]
  2. LASIX [Concomitant]
  3. TRICOR [Concomitant]
  4. NOVOLOG [Concomitant]
  5. PRILOSEC [Concomitant]
  6. PLAVIX [Concomitant]
  7. COZAAR [Concomitant]
  8. AMBIEN [Concomitant]
  9. SODIUM CHLORIDE [Concomitant]
  10. LOVENOX [Concomitant]
  11. ALLOPURINOL [Concomitant]
  12. VYTORIN [Concomitant]
  13. LANTUS [Concomitant]
  14. TIOTROPIUM [Concomitant]
  15. PIOGLITAZONE HYDROCHLORIDE [Concomitant]
  16. ADVAIR DISKUS 100/50 [Concomitant]
  17. DIGOXIN [Suspect]
     Dosage: .250 MG;QD
     Dates: start: 20060911, end: 20080309

REACTIONS (46)
  - MULTIPLE INJURIES [None]
  - DYSPNOEA [None]
  - TENDERNESS [None]
  - BUNDLE BRANCH BLOCK LEFT [None]
  - QRS AXIS ABNORMAL [None]
  - BRADYCARDIA [None]
  - BLOOD CREATINE PHOSPHOKINASE MB INCREASED [None]
  - MYOCARDIAL INFARCTION [None]
  - MITRAL VALVE CALCIFICATION [None]
  - FATIGUE [None]
  - CONDUCTION DISORDER [None]
  - WHITE BLOOD CELL COUNT INCREASED [None]
  - PYELONEPHRITIS [None]
  - AORTIC CALCIFICATION [None]
  - AORTIC VALVE INCOMPETENCE [None]
  - CORONARY ARTERY DISEASE [None]
  - BLOOD BILIRUBIN INCREASED [None]
  - RENAL FAILURE CHRONIC [None]
  - CHEST PAIN [None]
  - ASTHENIA [None]
  - BLOOD CREATINE PHOSPHOKINASE INCREASED [None]
  - BLOOD GLUCOSE INCREASED [None]
  - HYPERTENSIVE NEPHROPATHY [None]
  - DIABETIC NEPHROPATHY [None]
  - LEFT VENTRICULAR DYSFUNCTION [None]
  - MITRAL VALVE INCOMPETENCE [None]
  - STRESS [None]
  - ISCHAEMIC CARDIOMYOPATHY [None]
  - ARTERIOSCLEROSIS CORONARY ARTERY [None]
  - ATRIAL FIBRILLATION [None]
  - ELECTROCARDIOGRAM ST SEGMENT DEPRESSION [None]
  - HAEMODIALYSIS [None]
  - BLOOD SODIUM DECREASED [None]
  - ECONOMIC PROBLEM [None]
  - PYREXIA [None]
  - BRONCHITIS CHRONIC [None]
  - BICUSPID AORTIC VALVE [None]
  - BLOOD PRESSURE SYSTOLIC INCREASED [None]
  - TOXICITY TO VARIOUS AGENTS [None]
  - VOMITING [None]
  - RENAL FAILURE ACUTE [None]
  - HYPERKALAEMIA [None]
  - TRICUSPID VALVE INCOMPETENCE [None]
  - ANAEMIA OF CHRONIC DISEASE [None]
  - CARBON DIOXIDE DECREASED [None]
  - NAUSEA [None]
